FAERS Safety Report 7941954-6 (Version None)
Quarter: 2011Q4

REPORT INFORMATION
  Report Type: 
  Country: None (occurrence: None)
  Receive Date: 20111128
  Receipt Date: 20111121
  Transmission Date: 20120403
  Serious: Yes (Other)
  Sender: FDA-Public Use
  Company Number: US-JNJFOC-20110907058

PATIENT
  Sex: Female

DRUGS (6)
  1. CYMBALTA [Concomitant]
     Indication: PANIC ATTACK
     Route: 065
  2. HYDROCODONE [Concomitant]
     Indication: PAIN
     Route: 065
  3. LEVAQUIN [Suspect]
     Indication: POSTOPERATIVE WOUND INFECTION
     Route: 048
     Dates: start: 20100601
  4. CIPROFLOXACIN [Suspect]
     Indication: POSTOPERATIVE WOUND INFECTION
     Route: 048
  5. CYCLOBENZAPRINE [Concomitant]
     Indication: MUSCLE RELAXANT THERAPY
     Route: 065
  6. METHYLPREDNISOLONE [Suspect]
     Indication: ANTIINFLAMMATORY THERAPY
     Route: 065

REACTIONS (2)
  - TENDONITIS [None]
  - MENISCUS LESION [None]
